FAERS Safety Report 10559956 (Version 2)
Quarter: 2014Q4

REPORT INFORMATION
  Report Type: Spontaneous
  Country: DE (occurrence: DE)
  Receive Date: 20141103
  Receipt Date: 20141103
  Transmission Date: 20150529
  Serious: Yes (Other)
  Sender: FDA-Public Use
  Company Number: DE-ASTELLAS-2014EU012532

PATIENT
  Sex: Female

DRUGS (3)
  1. TRIMIPRAMIN                        /00051802/ [Concomitant]
     Indication: SLEEP APNOEA SYNDROME
     Route: 048
     Dates: start: 201408
  2. IMIPRAMIN [Interacting]
     Active Substance: IMIPRAMINE
     Indication: PRODUCT USED FOR UNKNOWN INDICATION
     Dosage: UNK, UNKNOWN FREQ.
     Route: 065
  3. BETMIGA [Suspect]
     Active Substance: MIRABEGRON
     Indication: HYPERTONIC BLADDER
     Route: 048
     Dates: start: 20140701, end: 20140912

REACTIONS (3)
  - Drug interaction [Unknown]
  - Tachycardia [Unknown]
  - Arrhythmia [Recovered/Resolved]

NARRATIVE: CASE EVENT DATE: 20140910
